FAERS Safety Report 16013555 (Version 1)
Quarter: 2019Q1

REPORT INFORMATION
  Report Type: Spontaneous
  Country: DE (occurrence: DE)
  Receive Date: 20190227
  Receipt Date: 20190227
  Transmission Date: 20190418
  Serious: Yes (Other)
  Sender: FDA-Public Use
  Company Number: DE-BAYER-2019-040844

PATIENT
  Age: 76 Year
  Sex: Female

DRUGS (2)
  1. ACETYLSALICYLIC ACID (PAIN AND FEVER) [Suspect]
     Active Substance: ASPIRIN
  2. APIXABAN [Suspect]
     Active Substance: APIXABAN

REACTIONS (2)
  - Cerebellar haemorrhage [Unknown]
  - Cerebral ventricular rupture [Unknown]

NARRATIVE: CASE EVENT DATE: 20190216
